FAERS Safety Report 18902542 (Version 4)
Quarter: 2021Q4

REPORT INFORMATION
  Report Type: Spontaneous
  Country: US (occurrence: US)
  Receive Date: 20210216
  Receipt Date: 20211124
  Transmission Date: 20220303
  Serious: Yes (Other)
  Sender: FDA-Public Use
  Company Number: US-009507513-2102USA005688

PATIENT
  Sex: Male
  Weight: 82.54 kg

DRUGS (8)
  1. KEYTRUDA [Suspect]
     Active Substance: PEMBROLIZUMAB
     Indication: Renal cell carcinoma
     Dosage: EVERY 3 WEEKS
  2. INLYTA [Suspect]
     Active Substance: AXITINIB
     Indication: Renal cell carcinoma
     Dosage: 5 MG BY MOUTH TWO TIMES A DAY/ 5 MILLIGRAM IN THE MORNING AND AT NIGHT
     Route: 048
     Dates: start: 202010
  3. INLYTA [Suspect]
     Active Substance: AXITINIB
     Dosage: THEN, DOSE WAS REDUCED TO 4 MG BY MOUTH TWO TIMES A DAY
     Route: 048
  4. INLYTA [Suspect]
     Active Substance: AXITINIB
     Dosage: THEN, IT WAS REDUCED TO 3 MG BY MOUTH TWO TIMES PER DAY (3 MG IN THE MORNING AND AT NIGHT), AFTER FE
     Route: 048
     Dates: end: 2021
  5. CORTISONE [Suspect]
     Active Substance: CORTISONE
  6. ASPIRIN [Concomitant]
     Active Substance: ASPIRIN
  7. CHOLECALCIFEROL [Concomitant]
     Active Substance: CHOLECALCIFEROL
  8. LORATADINE [Concomitant]
     Active Substance: LORATADINE

REACTIONS (33)
  - Renal impairment [Unknown]
  - Mental impairment [Not Recovered/Not Resolved]
  - Feeding disorder [Recovered/Resolved]
  - Oral discomfort [Recovered/Resolved]
  - Decreased appetite [Not Recovered/Not Resolved]
  - Dysphagia [Not Recovered/Not Resolved]
  - Stomatitis [Recovered/Resolved]
  - Dysgeusia [Not Recovered/Not Resolved]
  - Tongue ulceration [Not Recovered/Not Resolved]
  - Pain in extremity [Recovered/Resolved]
  - Skin ulcer [Not Recovered/Not Resolved]
  - Thyroid disorder [Recovered/Resolved]
  - Oral mucosal blistering [Not Recovered/Not Resolved]
  - Tooth disorder [Unknown]
  - Blood pressure increased [Recovered/Resolved]
  - Myalgia [Recovered/Resolved]
  - Thinking abnormal [Recovered/Resolved]
  - Product dose omission issue [Unknown]
  - Headache [Not Recovered/Not Resolved]
  - Chest pain [Not Recovered/Not Resolved]
  - Movement disorder [Not Recovered/Not Resolved]
  - Arthralgia [Not Recovered/Not Resolved]
  - Back pain [Not Recovered/Not Resolved]
  - Weight decreased [Not Recovered/Not Resolved]
  - Skin exfoliation [Unknown]
  - Renal mass [Not Recovered/Not Resolved]
  - Cardiac disorder [Unknown]
  - Spinal osteoarthritis [Not Recovered/Not Resolved]
  - Feeling abnormal [Not Recovered/Not Resolved]
  - Gait disturbance [Not Recovered/Not Resolved]
  - Memory impairment [Not Recovered/Not Resolved]
  - Hepatic function abnormal [Unknown]
  - Drug ineffective [Unknown]

NARRATIVE: CASE EVENT DATE: 20200101
